FAERS Safety Report 6420600-7 (Version None)
Quarter: 2009Q4

REPORT INFORMATION
  Report Type: 
  Country: None (occurrence: None)
  Receive Date: 20091027
  Receipt Date: 20091009
  Transmission Date: 20100525
  Serious: Yes (Hospitalization)
  Sender: FDA-Public Use
  Company Number: 1-20371650

PATIENT
  Sex: Male
  Weight: 86.8185 kg

DRUGS (6)
  1. CARBAMAZEPINE [Suspect]
     Indication: BIPOLAR DISORDER
     Dosage: 200 MG, TID, ORAL; 3 TO 4 WEEKS
     Route: 048
  2. TOPIRAMATE 300 MG [Concomitant]
  3. OLANZAPINE [Concomitant]
  4. QUETIAPINE 200 MG [Concomitant]
  5. GUANFACINE 1 MG [Concomitant]
  6. DESMOPRESSIN ACETATE 0.2 MG [Concomitant]

REACTIONS (13)
  - AFFECT LABILITY [None]
  - AGGRESSION [None]
  - AGITATION [None]
  - AMINO ACID METABOLISM DISORDER [None]
  - ANGER [None]
  - CARNITINE DEFICIENCY [None]
  - DRUG LEVEL DECREASED [None]
  - FEAR [None]
  - HYPERAMMONAEMIA [None]
  - INAPPROPRIATE AFFECT [None]
  - INSOMNIA [None]
  - JUDGEMENT IMPAIRED [None]
  - PHYSICAL ASSAULT [None]
